FAERS Safety Report 5793531-3 (Version None)
Quarter: 2008Q2

REPORT INFORMATION
  Report Type: 
  Country: None (occurrence: None)
  Receive Date: 20080627
  Receipt Date: 20080617
  Transmission Date: 20081010
  Serious: Yes (Other)
  Sender: FDA-Public Use
  Company Number: PHEH2008US04933

PATIENT
  Sex: Male

DRUGS (2)
  1. EXELON [Suspect]
     Dosage: STARTER PATCH
     Dates: start: 20080124
  2. EXELON [Suspect]
     Dosage: 9.5 MG, QD
     Route: 062
     Dates: start: 20080221, end: 20080201

REACTIONS (14)
  - AGEUSIA [None]
  - AMNESIA [None]
  - ANOREXIA [None]
  - ANOSMIA [None]
  - CONFUSIONAL STATE [None]
  - DYSKINESIA [None]
  - DYSPNOEA [None]
  - HALLUCINATION, AUDITORY [None]
  - HALLUCINATION, VISUAL [None]
  - LACRIMATION INCREASED [None]
  - MUSCLE SPASMS [None]
  - NIGHTMARE [None]
  - PAIN [None]
  - SLEEP TALKING [None]
